FAERS Safety Report 20408681 (Version 16)
Quarter: 2022Q3

REPORT INFORMATION
  Report Type: Report from Study
  Country: US (occurrence: US)
  Receive Date: 20220201
  Receipt Date: 20220701
  Transmission Date: 20221027
  Serious: Yes (Death, Hospitalization, Other)
  Sender: FDA-Public Use
  Company Number: US-NOVARTISPH-NVSC2022US019153

PATIENT
  Age: 57 Year
  Sex: Female
  Weight: 60.771 kg

DRUGS (11)
  1. TREPROSTINIL [Suspect]
     Active Substance: TREPROSTINIL
     Indication: Pulmonary arterial hypertension
     Dosage: 6 NG/KG/MIN, CONT
     Route: 042
  2. TREPROSTINIL [Suspect]
     Active Substance: TREPROSTINIL
     Dosage: 8 NG/KG/MIN, CONT
     Route: 042
     Dates: start: 20220126
  3. TREPROSTINIL [Suspect]
     Active Substance: TREPROSTINIL
     Dosage: 10 NG/KG/MIN, CONT
     Route: 042
  4. TREPROSTINIL [Suspect]
     Active Substance: TREPROSTINIL
     Dosage: 14 NG/KG/MIN, CONT
     Route: 042
     Dates: end: 20220531
  5. TREPROSTINIL [Suspect]
     Active Substance: TREPROSTINIL
     Dosage: 14 NG/KG/MIN, CONT
     Route: 058
  6. TREPROSTINIL [Suspect]
     Active Substance: TREPROSTINIL
     Dosage: 14 NG/KG/MIN, CONT
     Route: 065
  7. TREPROSTINIL [Suspect]
     Active Substance: TREPROSTINIL
     Dosage: 14 NG/KG/MIN, CONT
     Route: 058
  8. MYFORTIC [Suspect]
     Active Substance: MYCOPHENOLATE SODIUM
     Indication: Product used for unknown indication
     Dosage: UNK
     Route: 065
  9. OPSUMIT [Concomitant]
     Active Substance: MACITENTAN
     Indication: Product used for unknown indication
     Dosage: UNK
     Route: 065
  10. SILDENAFIL CITRATE [Concomitant]
     Active Substance: SILDENAFIL CITRATE
     Indication: Product used for unknown indication
     Dosage: UNK
     Route: 065
  11. VELETRI [Concomitant]
     Active Substance: EPOPROSTENOL
     Indication: Product used for unknown indication
     Dosage: UNK (VIAL)
     Route: 065

REACTIONS (18)
  - Death [Fatal]
  - Fluid retention [Unknown]
  - Insomnia [Unknown]
  - Decreased appetite [Unknown]
  - Dyspnoea [Unknown]
  - Diarrhoea [Unknown]
  - COVID-19 [Unknown]
  - Malaise [Unknown]
  - Illness [Recovered/Resolved]
  - Weight decreased [Unknown]
  - Hunger [Unknown]
  - Back pain [Unknown]
  - Pyrexia [Unknown]
  - Vomiting [Unknown]
  - Nausea [Unknown]
  - Fatigue [Unknown]
  - Headache [Unknown]
  - Abdominal distension [Unknown]

NARRATIVE: CASE EVENT DATE: 20211001
